FAERS Safety Report 7072312-7 (Version None)
Quarter: 2010Q4

REPORT INFORMATION
  Report Type: 
  Country: None (occurrence: None)
  Receive Date: 20101029
  Receipt Date: 20100126
  Transmission Date: 20110411
  Serious: Yes (Other)
  Sender: FDA-Public Use
  Company Number: A0838050A

PATIENT
  Age: 53 Year
  Sex: Female

DRUGS (3)
  1. ADVAIR DISKUS 100/50 [Suspect]
     Indication: CHRONIC OBSTRUCTIVE PULMONARY DISEASE
     Route: 055
  2. COMBIVENT [Concomitant]
  3. ALBUTEROL [Concomitant]

REACTIONS (3)
  - CATARACT [None]
  - VISION BLURRED [None]
  - VISUAL ACUITY REDUCED [None]
